FAERS Safety Report 9196453 (Version 4)
Quarter: 2013Q2

REPORT INFORMATION
  Report Type: Spontaneous
  Country: GB (occurrence: GB)
  Receive Date: 20130328
  Receipt Date: 20130507
  Transmission Date: 20140414
  Serious: Yes (Other)
  Sender: FDA-Public Use
  Company Number: GB-PFIZER INC-2013099305

PATIENT
  Sex: Female

DRUGS (4)
  1. AMIODARONE HCL [Suspect]
     Indication: ATRIAL FIBRILLATION
     Dosage: 600 MG, DAILY
     Route: 065
     Dates: start: 20120504
  2. AMIODARONE HCL [Suspect]
     Dosage: 400 MG, DAILY
     Route: 065
  3. AMIODARONE HCL [Suspect]
     Dosage: 200 MG, DAILY
     Route: 065
     Dates: end: 20120905
  4. FLECAINIDE [Suspect]
     Indication: ATRIAL FIBRILLATION
     Dosage: 50 MG DAILY
     Route: 065
     Dates: start: 201209

REACTIONS (7)
  - Corneal deposits [Recovered/Resolved]
  - Nausea [Recovered/Resolved]
  - Cough [Not Recovered/Not Resolved]
  - Fatigue [Recovered/Resolved]
  - Alopecia [Not Recovered/Not Resolved]
  - Dysgeusia [Recovered/Resolved]
  - Dry mouth [Recovered/Resolved]
